FAERS Safety Report 4431752-2 (Version None)
Quarter: 2004Q3

REPORT INFORMATION
  Report Type: 
  Country: None (occurrence: None)
  Receive Date: 20040818
  Receipt Date: 20040816
  Transmission Date: 20050211
  Serious: Yes (Other)
  Sender: FDA-Public Use
  Company Number: THQ2004A00731

PATIENT
  Age: 48 Year
  Sex: Male

DRUGS (4)
  1. LANSOPRAZOLE [Suspect]
     Indication: HELICOBACTER INFECTION
     Dosage: 60 MG (60 MG, 1 IN 1 D) , PER ORAL
     Route: 048
     Dates: start: 20040521, end: 20040525
  2. SALBUTAMOL (SALBUTAMOL) [Concomitant]
  3. SALMETEROL (SALMETEROL) [Concomitant]
  4. BECLOMETHASONE (BECLOMETASONE DIPROPIONATE) [Concomitant]

REACTIONS (2)
  - DELIRIUM [None]
  - HEADACHE [None]
